FAERS Safety Report 6863746-1 (Version None)
Quarter: 2010Q3

REPORT INFORMATION
  Report Type: 
  Country: None (occurrence: None)
  Receive Date: 20100721
  Receipt Date: 20100318
  Transmission Date: 20110219
  Serious: Yes (Hospitalization)
  Sender: FDA-Public Use
  Company Number: US-VALEANT-2010VX001133

PATIENT
  Age: 83 Year
  Sex: Male

DRUGS (8)
  1. DIHYDROERGOTAMINE MESYLATE [Suspect]
     Indication: PRODUCT USED FOR UNKNOWN INDICATION
     Route: 048
  2. ZOPICLONE [Concomitant]
     Route: 065
  3. FOLACIN [Concomitant]
     Route: 065
  4. FLORINEF [Concomitant]
     Route: 065
  5. BEHEPAN [Concomitant]
     Route: 065
  6. DUROFERON [Concomitant]
     Route: 065
  7. BENSERAZIDE HYDROCHLORIDE [Concomitant]
     Route: 065
  8. LEVODOPA [Concomitant]
     Route: 065

REACTIONS (4)
  - IRON DEFICIENCY ANAEMIA [None]
  - LUNG DISORDER [None]
  - PARKINSON'S DISEASE [None]
  - PLEURAL EFFUSION [None]
